FAERS Safety Report 25390003 (Version 1)
Quarter: 2025Q2

REPORT INFORMATION
  Report Type: Spontaneous
  Country: US (occurrence: None)
  Receive Date: 20250602
  Receipt Date: 20250602
  Transmission Date: 20250716
  Serious: Yes (Other)
  Sender: FDA-CTU
  Company Number: None

PATIENT
  Age: 55 Year
  Sex: Female
  Weight: 93 kg

DRUGS (3)
  1. MIRCERA [Suspect]
     Active Substance: METHOXY POLYETHYLENE GLYCOL-EPOETIN BETA
     Indication: Anaemia
     Route: 042
  2. PROTEIN [Concomitant]
     Active Substance: PROTEIN
  3. ONDANSETRON [Concomitant]
     Active Substance: ONDANSETRON

REACTIONS (7)
  - Incorrect route of product administration [None]
  - Abdominal pain upper [None]
  - Gait disturbance [None]
  - Unresponsive to stimuli [None]
  - Infusion related reaction [None]
  - Vomiting [None]
  - Heart rate increased [None]

NARRATIVE: CASE EVENT DATE: 20250527
